FAERS Safety Report 19376643 (Version 1)
Quarter: 2021Q2

REPORT INFORMATION
  Report Type: Report from Study
  Country: BR (occurrence: BR)
  Receive Date: 20210604
  Receipt Date: 20210604
  Transmission Date: 20210717
  Serious: Yes (Other)
  Sender: FDA-Public Use
  Company Number: BR-UCBSA-2021026245

PATIENT
  Age: 58 Year
  Sex: Female
  Weight: 63 kg

DRUGS (1)
  1. CERTOLIZUMAB PEGOL RA [Suspect]
     Active Substance: CERTOLIZUMAB PEGOL
     Indication: RHEUMATOID ARTHRITIS
     Dosage: 400 MILLIGRAM, EV 15 DAYS
     Route: 058
     Dates: start: 20210506

REACTIONS (5)
  - COVID-19 immunisation [Unknown]
  - Wound [Recovering/Resolving]
  - Skin discolouration [Recovering/Resolving]
  - Vaccination complication [Unknown]
  - Vaccination site reaction [Recovering/Resolving]

NARRATIVE: CASE EVENT DATE: 20210512
